FAERS Safety Report 23078993 (Version 1)
Quarter: 2023Q4

REPORT INFORMATION
  Report Type: Spontaneous
  Country: BR (occurrence: BR)
  Receive Date: 20231018
  Receipt Date: 20231018
  Transmission Date: 20240110
  Serious: Yes (Other)
  Sender: FDA-Public Use
  Company Number: BR-Accord-385505

PATIENT
  Age: 57 Year
  Sex: Female

DRUGS (6)
  1. PACLITAXEL [Suspect]
     Active Substance: PACLITAXEL
     Indication: Breast neoplasm
     Route: 042
     Dates: start: 20230731, end: 20230731
  2. DIPHENHYDRAMINE [Concomitant]
     Active Substance: DIPHENHYDRAMINE
     Dosage: STRENGTH: 50MG/ML
     Route: 042
     Dates: start: 20230731, end: 20230731
  3. ONDANSETRON [Concomitant]
     Active Substance: ONDANSETRON
     Dosage: STRENGTH: 2MG/ML
     Route: 042
     Dates: start: 20230731, end: 20230731
  4. DIMENHYDRINATE [Concomitant]
     Active Substance: DIMENHYDRINATE
     Dosage: STRENGTH: 3 MG/ML + 5 MG/ML + 100 MG/ML + 100 MG/ML?DOSE: 1 AMPOULE
     Route: 042
     Dates: start: 20230731, end: 20230731
  5. CARBOPLATIN [Concomitant]
     Active Substance: CARBOPLATIN
     Dosage: STRENGTH: 450MG/45ML
     Route: 042
     Dates: start: 20230731, end: 20230731
  6. DEXAMETHASONE [Concomitant]
     Active Substance: DEXAMETHASONE
     Dosage: STRENGTH: 4MG/ML
     Route: 042
     Dates: start: 20230731, end: 20230731

REACTIONS (4)
  - Malaise [Recovered/Resolved]
  - Hyperaemia [Recovered/Resolved]
  - Nausea [Recovered/Resolved]
  - Paraesthesia [Recovered/Resolved]

NARRATIVE: CASE EVENT DATE: 20230731
